FAERS Safety Report 15386637 (Version 4)
Quarter: 2019Q1

REPORT INFORMATION
  Report Type: Report from Study
  Country: None (occurrence: AU)
  Receive Date: 20180914
  Receipt Date: 20190118
  Transmission Date: 20190417
  Serious: Yes (Death, Hospitalization, Other)
  Sender: FDA-Public Use
  Company Number: AU-ABBVIE-18P-008-2478637-00

PATIENT
  Age: 65 Year
  Sex: Female
  Weight: 103 kg

DRUGS (6)
  1. VENETOCLAX. [Suspect]
     Active Substance: VENETOCLAX
     Indication: MANTLE CELL LYMPHOMA REFRACTORY
     Route: 048
     Dates: start: 20180827, end: 20180827
  2. VENETOCLAX. [Suspect]
     Active Substance: VENETOCLAX
     Dosage: IN THE MORNING
     Route: 048
  3. VENETOCLAX. [Suspect]
     Active Substance: VENETOCLAX
     Route: 048
  4. VENETOCLAX. [Suspect]
     Active Substance: VENETOCLAX
     Route: 048
     Dates: start: 20180831
  5. ALLOPURINOL. [Concomitant]
     Active Substance: ALLOPURINOL
     Indication: PROPHYLAXIS
     Dosage: IN THE MORNING
     Route: 048
     Dates: start: 20180820
  6. IBRUTINIB [Concomitant]
     Active Substance: IBRUTINIB
     Indication: MANTLE CELL LYMPHOMA
     Dosage: IN THE MORNING
     Route: 048
     Dates: start: 20180806

REACTIONS (6)
  - Pyrexia [Unknown]
  - Confusional state [Unknown]
  - Dizziness [Unknown]
  - Off label use [Unknown]
  - Disease progression [Fatal]
  - Tumour lysis syndrome [Recovered/Resolved]

NARRATIVE: CASE EVENT DATE: 20180827
